FAERS Safety Report 8911608 (Version 1)
Quarter: 2012Q4

REPORT INFORMATION
  Report Type: 
  Country: US (occurrence: US)
  Receive Date: 20121116
  Receipt Date: 20121116
  Transmission Date: 20130627
  Serious: Yes (Hospitalization)
  Sender: FDA-Public Use
  Company Number: US-BAYER-2012-118375

PATIENT
  Age: 21 Year
  Sex: Female
  Weight: 114 kg

DRUGS (5)
  1. YAZ [Suspect]
  2. OPIOIDS [Concomitant]
  3. PIROXICAM [Concomitant]
     Dosage: 20 mg, UNK
  4. LEXAPRO [Concomitant]
     Dosage: 10 mg, UNK
  5. SUBOXONE [Concomitant]
     Dosage: 8-2 mg

REACTIONS (1)
  - Deep vein thrombosis [None]
